FAERS Safety Report 7504400-2 (Version None)
Quarter: 2011Q2

REPORT INFORMATION
  Report Type: 
  Country: None (occurrence: None)
  Receive Date: 20110525
  Receipt Date: 20110519
  Transmission Date: 20111010
  Serious: Yes (Other)
  Sender: FDA-Public Use
  Company Number: US-ROCHE-773246

PATIENT
  Sex: Male

DRUGS (8)
  1. LUCENTIS [Suspect]
     Indication: MACULAR OEDEMA
     Dosage: DATE OF MOST RECENT DOSE: 04 MAY 2011.
     Route: 031
  2. RITUXAN [Suspect]
     Route: 065
     Dates: end: 20100101
  3. PREDNISOLONE [Concomitant]
     Dates: start: 20090901, end: 20100101
  4. LIPITOR [Concomitant]
  5. DOXORUBICIN HCL [Concomitant]
     Dates: start: 20090901, end: 20100101
  6. ZYRTEC [Concomitant]
  7. CYCLOPHOSPHAMIDE [Concomitant]
     Dates: start: 20090901, end: 20100101
  8. VINCRISTINE [Concomitant]
     Dates: start: 20090901, end: 20100101

REACTIONS (4)
  - LYMPHOMA [None]
  - MACULAR OEDEMA [None]
  - INJECTION SITE PAIN [None]
  - SEASONAL ALLERGY [None]
